FAERS Safety Report 24122740 (Version 1)
Quarter: 2024Q3

REPORT INFORMATION
  Report Type: Spontaneous
  Country: TR (occurrence: TR)
  Receive Date: 20240723
  Receipt Date: 20240723
  Transmission Date: 20241016
  Serious: Yes (Hospitalization)
  Sender: NOVO NORDISK
  Company Number: TR-NOVOPROD-1258796

PATIENT

DRUGS (1)
  1. RYZODEG 70/30 [Suspect]
     Active Substance: INSULIN ASPART\INSULIN DEGLUDEC
     Indication: Product used for unknown indication
     Dosage: 22 IU, QD (10 UNITS IN THE MORNING AND 12 UNITS IN THE EVENING)

REACTIONS (3)
  - Blood pressure increased [Unknown]
  - Blood glucose increased [Unknown]
  - Blood glucose decreased [Unknown]
